FAERS Safety Report 8512934-7 (Version None)
Quarter: 2012Q3

REPORT INFORMATION
  Report Type: 
  Country: None (occurrence: None)
  Receive Date: 20120716
  Receipt Date: 20120709
  Transmission Date: 20120928
  Serious: Yes (Other)
  Sender: FDA-Public Use
  Company Number: US-ELI_LILLY_AND_COMPANY-US201207003396

PATIENT
  Sex: Male

DRUGS (4)
  1. CIALIS [Suspect]
     Indication: ERECTILE DYSFUNCTION
     Dosage: 20 MG, PRN
  2. RAPAFLO [Concomitant]
  3. CIALIS [Suspect]
     Dosage: 5 MG, QD
     Dates: start: 20120705, end: 20120707
  4. LISINOPRIL [Concomitant]

REACTIONS (3)
  - BACK PAIN [None]
  - MYDRIASIS [None]
  - MYALGIA [None]
